FAERS Safety Report 8034605-6 (Version None)
Quarter: 2012Q1

REPORT INFORMATION
  Report Type: 
  Country: None (occurrence: None)
  Receive Date: 20120110
  Receipt Date: 20120103
  Transmission Date: 20120608
  Serious: Yes (Hospitalization)
  Sender: FDA-Public Use
  Company Number: FR-RB-036073-12

PATIENT
  Age: 17 Year
  Sex: Female

DRUGS (3)
  1. SUBUTEX [Suspect]
     Indication: HEADACHE
     Dosage: ONE SINGLE INTAKE OF 4 MG
     Route: 048
     Dates: start: 20110928, end: 20110928
  2. RISPERDAL NOS [Concomitant]
     Indication: PRODUCT USED FOR UNKNOWN INDICATION
     Route: 065
  3. DIVARIUS NOS [Concomitant]
     Indication: PRODUCT USED FOR UNKNOWN INDICATION
     Route: 065

REACTIONS (4)
  - NAUSEA [None]
  - MIOSIS [None]
  - DIZZINESS [None]
  - TREMOR [None]
